FAERS Safety Report 14846638 (Version 2)
Quarter: 2018Q2

REPORT INFORMATION
  Report Type: Spontaneous
  Country: FR (occurrence: FR)
  Receive Date: 20180504
  Receipt Date: 20180508
  Transmission Date: 20180711
  Serious: Yes (Other)
  Sender: FDA-Public Use
  Company Number: FR-AUROBINDO-AUR-APL-2018-023607

PATIENT
  Age: 45 Year
  Sex: Male

DRUGS (8)
  1. PREDNISONE. [Suspect]
     Active Substance: PREDNISONE
     Dosage: UNK ()
  2. VINCRISTINE SULFATE. [Suspect]
     Active Substance: VINCRISTINE SULFATE
     Indication: HODGKIN^S DISEASE
     Dosage: UNK
     Route: 065
  3. PROCARBAZINE [Suspect]
     Active Substance: PROCARBAZINE
     Indication: HODGKIN^S DISEASE
     Dosage: UNK
     Route: 065
  4. PREDNISONE. [Suspect]
     Active Substance: PREDNISONE
     Indication: HODGKIN^S DISEASE
     Dosage: UNK
     Route: 065
  5. PROCARBAZINE [Suspect]
     Active Substance: PROCARBAZINE
     Dosage: UNK ()
  6. VINCRISTINE SULFATE. [Suspect]
     Active Substance: VINCRISTINE SULFATE
     Dosage: UNK ()
  7. MECHLORETHAMINE [Suspect]
     Active Substance: MECHLORETHAMINE
     Dosage: UNK ()
  8. MECHLORETHAMINE [Suspect]
     Active Substance: MECHLORETHAMINE
     Indication: HODGKIN^S DISEASE
     Dosage: UNK
     Route: 065

REACTIONS (2)
  - Acute promyelocytic leukaemia [Recovered/Resolved]
  - Second primary malignancy [Unknown]
